FAERS Safety Report 9957199 (Version 1)
Quarter: 2014Q1

REPORT INFORMATION
  Report Type: Spontaneous
  Country: US (occurrence: US)
  Receive Date: 20140304
  Receipt Date: 20140304
  Transmission Date: 20141002
  Serious: No
  Sender: FDA-Public Use
  Company Number: US-ABBVIE-13P-163-1097772-00

PATIENT
  Age: 20 Year
  Sex: Female
  Weight: 56.75 kg

DRUGS (5)
  1. HUMIRA [Suspect]
     Indication: PSORIASIS
     Route: 058
     Dates: end: 201303
  2. HUMIRA [Suspect]
     Route: 058
     Dates: start: 201303, end: 201305
  3. HUMIRA [Suspect]
     Route: 058
     Dates: start: 201305
  4. ALBUTEROL [Concomitant]
     Indication: PROPHYLAXIS
     Dosage: NOT USED FOR THE LAST 2 YEARS
     Route: 055
  5. TRINESSA [Concomitant]
     Indication: CONTRACEPTION
     Route: 048

REACTIONS (2)
  - Ocular hyperaemia [Not Recovered/Not Resolved]
  - Keratitis [Not Recovered/Not Resolved]
